FAERS Safety Report 10511840 (Version 3)
Quarter: 2015Q1

REPORT INFORMATION
  Report Type: Spontaneous
  Country: BR (occurrence: BR)
  Receive Date: 20141010
  Receipt Date: 20150122
  Transmission Date: 20150720
  Serious: Yes (Other)
  Sender: FDA-Public Use
  Company Number: BR-PFIZER INC-2014278555

PATIENT
  Age: 16 Year
  Sex: Female
  Weight: 104 kg

DRUGS (2)
  1. SERTRALINE HCL [Suspect]
     Active Substance: SERTRALINE HYDROCHLORIDE
     Indication: DEPRESSION
     Dosage: 4 TABLETS OF 50MG (200 MG), DAILY
     Route: 048
     Dates: start: 201408, end: 201409
  2. TRILEPTAL [Concomitant]
     Active Substance: OXCARBAZEPINE
     Indication: SEIZURE
     Dosage: UNK

REACTIONS (4)
  - Oesophageal injury [Recovered/Resolved]
  - Infarction [Recovered/Resolved]
  - Product coating issue [Recovered/Resolved]
  - Hypertension [Recovered/Resolved]

NARRATIVE: CASE EVENT DATE: 2014
